FAERS Safety Report 4809716-6 (Version None)
Quarter: 2005Q4

REPORT INFORMATION
  Report Type: 
  Country: None (occurrence: None)
  Receive Date: 20051024
  Receipt Date: 20051011
  Transmission Date: 20060501
  Serious: Yes (Other)
  Sender: FDA-Public Use
  Company Number: HQWYE037514OCT05

PATIENT
  Age: 66 Year
  Sex: Male
  Weight: 111.6 kg

DRUGS (2)
  1. RAPAMUNE [Suspect]
     Indication: PROPHYLAXIS AGAINST TRANSPLANT REJECTION
     Dosage: 8 MG 1X PER 1 DAY, ORAL
     Route: 048
     Dates: start: 20050211
  2. RAPAMUNE [Suspect]

REACTIONS (1)
  - MALIGNANT MELANOMA [None]
